FAERS Safety Report 5147592-5 (Version None)
Quarter: 2006Q4

REPORT INFORMATION
  Report Type: 
  Country: None (occurrence: None)
  Receive Date: 20061106
  Receipt Date: 20061020
  Transmission Date: 20070319
  Serious: Yes (Hospitalization)
  Sender: FDA-Public Use
  Company Number: 2006001910

PATIENT
  Age: 55 Year
  Sex: Male
  Weight: 60 kg

DRUGS (8)
  1. ERLOTINIB (TABLET) [Suspect]
     Indication: SQUAMOUS CELL CARCINOMA
     Dosage: 100MG (QD), ORAL
     Route: 048
     Dates: start: 20060829
  2. ERLOTINIB (TABLET) [Suspect]
     Indication: TONSIL CANCER
     Dosage: 100MG (QD), ORAL
     Route: 048
     Dates: start: 20060829
  3. BEVACIZUMAB (INJECTION FOR INFUSION) [Suspect]
     Indication: NEOPLASM MALIGNANT
     Dosage: 812 MG/M^2 (Q2W), INTRAVENOUS
     Route: 042
     Dates: start: 20060912
  4. CISPLATIN [Suspect]
     Indication: NEOPLASM MALIGNANT
     Dosage: 55 MG, INTRAVENOUS
     Route: 042
     Dates: start: 20060912, end: 20060914
  5. ONDANSETRON [Concomitant]
  6. PROCHLORPERAZINE MALEATE [Concomitant]
  7. DEXAMETHASONE TAB [Concomitant]
  8. SENNA (SENNA) [Concomitant]

REACTIONS (8)
  - ACTIVITIES OF DAILY LIVING IMPAIRED [None]
  - ALANINE AMINOTRANSFERASE INCREASED [None]
  - BLOOD BILIRUBIN INCREASED [None]
  - BLOOD CHLORIDE DECREASED [None]
  - ELECTROLYTE IMBALANCE [None]
  - HYPONATRAEMIA [None]
  - MALAISE [None]
  - PERFORMANCE STATUS DECREASED [None]
